FAERS Safety Report 8255822-6 (Version None)
Quarter: 2012Q2

REPORT INFORMATION
  Report Type: 
  Country: None (occurrence: None)
  Receive Date: 20120403
  Receipt Date: 20120319
  Transmission Date: 20120825
  Serious: Yes (Death, Other)
  Sender: FDA-Public Use
  Company Number: DE-CELGENEUS-062-50794-10020937

PATIENT
  Age: 68 Year
  Sex: Male
  Weight: 81 kg

DRUGS (33)
  1. DEXRAZOXANE HYDROCHLORIDE [Suspect]
     Dosage: 2000 MILLIGRAM
     Route: 041
     Dates: start: 20100127, end: 20100127
  2. VANCOMYCIN [Concomitant]
     Route: 065
     Dates: start: 20100212, end: 20100213
  3. NOVALGIN [Concomitant]
     Route: 065
     Dates: start: 20100131, end: 20100202
  4. DEXRAZOXANE HYDROCHLORIDE [Suspect]
     Dosage: 2000 MILLIGRAM
     Route: 041
     Dates: start: 20100128, end: 20100128
  5. NOVALGIN [Concomitant]
     Dosage: 20 UNKNOWN
     Route: 065
     Dates: start: 20100207, end: 20100207
  6. GENTAMICIN SULFATE [Concomitant]
     Dosage: 240 MILLIGRAM
     Route: 065
     Dates: start: 20100119, end: 20100121
  7. GRANISETRON HYDROCHLORIDE [Concomitant]
     Route: 065
     Dates: start: 20100118, end: 20100130
  8. NEUPOGEN [Concomitant]
     Dosage: 30 UNKNOWN
     Route: 065
     Dates: start: 20100130, end: 20100130
  9. ACETAMINOPHEN [Concomitant]
     Route: 065
     Dates: start: 20100131, end: 20100131
  10. NOXAFIL [Suspect]
     Indication: PROPHYLAXIS
     Dosage: 15 MILLILITER
     Route: 048
     Dates: start: 20100115, end: 20100205
  11. COTRIM DS [Suspect]
     Route: 065
     Dates: start: 20100125, end: 20100125
  12. VANCOMYCIN [Concomitant]
     Route: 065
     Dates: start: 20100203, end: 20100211
  13. ADDEL/CERNIVIT [Concomitant]
     Route: 065
     Dates: start: 20100207, end: 20100218
  14. PLATELETS [Concomitant]
     Route: 065
     Dates: start: 20091101
  15. DEXRAZOXANE HYDROCHLORIDE [Suspect]
     Indication: EXTRAVASATION
     Dosage: 1000 MILLIGRAM
     Route: 041
     Dates: start: 20100129, end: 20100129
  16. VANCONIN [Concomitant]
     Dosage: 750 MILLIGRAM
     Route: 065
     Dates: start: 20100207, end: 20100207
  17. RED BLOOD CELLS [Concomitant]
     Route: 065
     Dates: start: 20091101
  18. VIDAZA [Suspect]
     Indication: ACUTE MYELOID LEUKAEMIA
     Dosage: 75 MILLIGRAM
     Route: 041
     Dates: start: 20100118, end: 20100122
  19. CIPROFLOXACIN [Concomitant]
     Dosage: 800 MILLIGRAM
     Route: 065
     Dates: start: 20100115, end: 20100115
  20. LORMETAZEPAM [Concomitant]
     Route: 065
     Dates: start: 20100114, end: 20100127
  21. VERGENTAN [Concomitant]
     Dosage: 1500 GRAM
     Route: 065
     Dates: start: 20100131, end: 20100131
  22. CYTARABINE [Suspect]
     Indication: ACUTE MYELOID LEUKAEMIA
     Dosage: 200 MILLIGRAM
     Route: 041
     Dates: start: 20100123, end: 20100129
  23. DAUNORUBICIN HCL [Suspect]
     Indication: ACUTE MYELOID LEUKAEMIA
     Dosage: 90 MILLIGRAM
     Route: 041
     Dates: start: 20100125, end: 20100127
  24. COTRIM DS [Suspect]
     Indication: PROPHYLAXIS
     Route: 048
     Dates: start: 20100118, end: 20100119
  25. RANITIDINE [Concomitant]
     Dosage: 150 MILLIGRAM
     Route: 065
     Dates: start: 20100205, end: 20100218
  26. VANCONIN [Concomitant]
     Dosage: 1000 MILLIGRAM
     Route: 065
     Dates: start: 20100208, end: 20100209
  27. VANCONIN [Concomitant]
     Dosage: 500 MILLIGRAM
     Route: 065
     Dates: start: 20100210, end: 20100210
  28. CYTARABINE [Concomitant]
     Dosage: 200 MILLIGRAM
     Route: 065
     Dates: start: 20100115, end: 20100116
  29. PANTOPRAZOLE [Suspect]
     Indication: PROPHYLAXIS
     Dosage: 20 MILLIGRAM
     Route: 048
     Dates: start: 20100102, end: 20100204
  30. COTRIM DS [Suspect]
     Route: 065
     Dates: start: 20100121, end: 20100121
  31. AMPHOTERICIN B [Concomitant]
     Route: 065
     Dates: start: 20100204, end: 20100218
  32. NOCTAMID [Concomitant]
     Route: 065
     Dates: start: 20100128, end: 20100205
  33. CIPROFLOXACIN [Concomitant]
     Dosage: 1000 MILLIGRAM
     Route: 065
     Dates: start: 20100116, end: 20100130

REACTIONS (15)
  - CARDIAC FAILURE ACUTE [None]
  - NEUTROPENIA [None]
  - MUCOSAL INFLAMMATION [None]
  - VOMITING [None]
  - RENAL FAILURE ACUTE [None]
  - LEUKOPENIA [None]
  - FEBRILE NEUTROPENIA [None]
  - PYREXIA [None]
  - OEDEMA PERIPHERAL [None]
  - EPISTAXIS [None]
  - ACUTE HEPATIC FAILURE [None]
  - PETECHIAE [None]
  - DIARRHOEA [None]
  - THROMBOCYTOPENIA [None]
  - NAUSEA [None]
